FAERS Safety Report 8363283-1 (Version None)
Quarter: 2012Q2

REPORT INFORMATION
  Report Type: 
  Country: None (occurrence: None)
  Receive Date: 20120516
  Receipt Date: 20110623
  Transmission Date: 20120825
  Serious: No
  Sender: FDA-Public Use
  Company Number: US-GLAXOSMITHKLINE-A0932739A

PATIENT
  Age: 10 Month
  Sex: Male

DRUGS (2)
  1. UNKNOWN [Concomitant]
  2. BACTROBAN [Suspect]
     Indication: SKIN INFECTION
     Route: 061
     Dates: start: 20080101

REACTIONS (2)
  - TOOTH DISCOLOURATION [None]
  - EXPOSURE DURING BREAST FEEDING [None]
